FAERS Safety Report 10625214 (Version 1)
Quarter: 2014Q4

REPORT INFORMATION
  Report Type: Spontaneous
  Country: ES (occurrence: ES)
  Receive Date: 20141204
  Receipt Date: 20141204
  Transmission Date: 20150529
  Serious: Yes (Death, Other)
  Sender: FDA-Public Use
  Company Number: PHHY2014ES156984

PATIENT
  Age: 67 Year
  Sex: Male

DRUGS (3)
  1. TACROLIMUS. [Suspect]
     Active Substance: TACROLIMUS
     Indication: IMMUNOSUPPRESSION
     Route: 065
  2. EVEROLIMUS [Suspect]
     Active Substance: EVEROLIMUS
     Indication: IMMUNOSUPPRESSION
     Dosage: 0.5 MG, Q12H
     Route: 065
  3. MYCOPHENOLATE MOFETIL. [Suspect]
     Active Substance: MYCOPHENOLATE MOFETIL
     Indication: IMMUNOSUPPRESSION
     Route: 065

REACTIONS (8)
  - Death [Fatal]
  - Hepatitis C [Unknown]
  - Progressive multifocal leukoencephalopathy [Recovered/Resolved]
  - Neurotoxicity [Recovered/Resolved]
  - Dyslipidaemia [Unknown]
  - Liver transplant rejection [Unknown]
  - Seizure [Recovered/Resolved]
  - Cytomegalovirus infection [Unknown]
